FAERS Safety Report 8935108 (Version 2)
Quarter: 2013Q4

REPORT INFORMATION
  Report Type: Spontaneous
  Country: GB (occurrence: GB)
  Receive Date: 20121129
  Receipt Date: 20131011
  Transmission Date: 20140711
  Serious: Yes (Other)
  Sender: FDA-Public Use
  Company Number: GB-WATSON-2012-20646

PATIENT
  Age: 44 Year
  Sex: Male

DRUGS (3)
  1. CITALOPRAM HYDROBROMIDE (UNKNOWN) [Suspect]
     Indication: OBSESSIVE-COMPULSIVE DISORDER
     Dosage: 40 MG
     Route: 048
     Dates: start: 201112, end: 20121009
  2. PROPRANOLOL (WATSON LABORATORIES) [Suspect]
     Indication: PRODUCT USED FOR UNKNOWN INDICATION
     Dosage: 80 MG, UNK
     Route: 065
  3. TEGRETOL [Concomitant]
     Indication: PRODUCT USED FOR UNKNOWN INDICATION
     Dosage: UNKNOWN
     Route: 065

REACTIONS (2)
  - Electrocardiogram QT prolonged [Recovered/Resolved]
  - Heart rate decreased [Unknown]
